FAERS Safety Report 6664538-9 (Version None)
Quarter: 2010Q2

REPORT INFORMATION
  Report Type: 
  Country: None (occurrence: None)
  Receive Date: 20100401
  Receipt Date: 20100324
  Transmission Date: 20101027
  Serious: Yes (Death)
  Sender: FDA-Public Use
  Company Number: BR-PFIZER INC-2010036827

PATIENT
  Age: 68 Year
  Sex: Male

DRUGS (1)
  1. DETRUSITOL LA [Suspect]
     Dosage: UNK
     Route: 048
     Dates: start: 20080508

REACTIONS (2)
  - DISEASE COMPLICATION [None]
  - RECTAL CANCER [None]
